FAERS Safety Report 22273203 (Version 1)
Quarter: 2023Q2

REPORT INFORMATION
  Report Type: Spontaneous
  Country: FR (occurrence: FR)
  Receive Date: 20230502
  Receipt Date: 20230502
  Transmission Date: 20230721
  Serious: Yes (Hospitalization)
  Sender: FDA-Public Use
  Company Number: None

PATIENT
  Age: 34 Year
  Sex: Male
  Weight: 82 kg

DRUGS (1)
  1. METHOTREXATE [Suspect]
     Active Substance: METHOTREXATE
     Indication: Pulmonary sarcoidosis
     Route: 065
     Dates: start: 20230306, end: 20230315

REACTIONS (11)
  - Accidental overdose [Recovered/Resolved]
  - Mucosal inflammation [Recovering/Resolving]
  - Normocytic anaemia [Recovering/Resolving]
  - Product communication issue [Recovered/Resolved]
  - Rash pruritic [Recovering/Resolving]
  - Thrombocytopenia [Recovered/Resolved]
  - Incorrect dosage administered [Recovered/Resolved]
  - Haemoptysis [Recovered/Resolved]
  - Diarrhoea [Recovered/Resolved]
  - Asthenia [Recovering/Resolving]
  - Epistaxis [Recovered/Resolved]

NARRATIVE: CASE EVENT DATE: 20230306
